FAERS Safety Report 10183066 (Version 2)
Quarter: 2014Q2

REPORT INFORMATION
  Report Type: Report from Study
  Country: JP (occurrence: JP)
  Receive Date: 20140520
  Receipt Date: 20140527
  Transmission Date: 20141212
  Serious: Yes (Hospitalization)
  Sender: FDA-Public Use
  Company Number: JP-ASTRAZENECA-2014SE33238

PATIENT
  Age: 29445 Day
  Sex: Male
  Weight: 76 kg

DRUGS (30)
  1. AZD6140 [Suspect]
     Indication: PERIPHERAL ARTERIAL OCCLUSIVE DISEASE
     Route: 048
     Dates: start: 20130513, end: 20140423
  2. D-ALFA [Concomitant]
     Indication: OSTEOPOROSIS
     Route: 048
     Dates: start: 2004
  3. BLOPRESS [Concomitant]
     Indication: HYPERTENSION
     Route: 048
     Dates: start: 2004
  4. EPINASTINE HYDROCHLORIDE [Concomitant]
     Indication: ASTHMA
     Route: 048
     Dates: start: 2004
  5. FUROSEMIDE [Concomitant]
     Indication: HYPERTENSION
     Route: 048
     Dates: start: 2004
  6. IDOMETHINE [Concomitant]
     Indication: ARTHRALGIA
     Route: 062
     Dates: start: 2004
  7. JUVELA [Concomitant]
     Indication: CIRCULATORY COLLAPSE
     Route: 062
     Dates: start: 2004
  8. LOXOPROFEN [Concomitant]
     Indication: ARTHRALGIA
     Route: 048
     Dates: start: 2004
  9. MENTAX [Concomitant]
     Indication: FUNGAL INFECTION
     Dates: start: 2004
  10. METHISTA [Concomitant]
     Indication: PRODUCTIVE COUGH
     Route: 048
     Dates: start: 2004
  11. NIFEDIPINE CR [Concomitant]
     Indication: HYPERTENSION
     Route: 048
     Dates: start: 2004
  12. PREDONINE [Concomitant]
     Indication: RHEUMATOID ARTHRITIS
     Route: 048
     Dates: start: 2004
  13. PRIVINA SOLUTION [Concomitant]
     Indication: RHINITIS
     Route: 045
     Dates: start: 2004
  14. REBAMIPIDE [Concomitant]
     Indication: GASTRITIS PROPHYLAXIS
     Route: 048
     Dates: start: 2004
  15. SYMBICORT TURBUHALER [Concomitant]
     Indication: ASTHMA
     Route: 045
     Dates: start: 2004
  16. TAMSULOSIN HYDROCHLORIDE [Concomitant]
     Indication: BENIGN PROSTATIC HYPERPLASIA
     Route: 048
     Dates: start: 2004
  17. TAPIZOL [Concomitant]
     Indication: GASTRITIS PROPHYLAXIS
     Route: 048
     Dates: start: 2004
  18. CRESTOR [Concomitant]
     Indication: HYPERLIPIDAEMIA
     Route: 048
     Dates: start: 2005
  19. MAGNESIUM OXIDE [Concomitant]
     Indication: CONSTIPATION
     Route: 048
     Dates: start: 2009
  20. NEW LECICARBON SUPP [Concomitant]
     Indication: CONSTIPATION
     Route: 054
     Dates: start: 2009
  21. NOVORAPID FLEXPEN [Concomitant]
     Indication: TYPE 2 DIABETES MELLITUS
     Route: 058
     Dates: start: 2009
  22. SHINLUCK SOLUTION [Concomitant]
     Indication: CONSTIPATION
     Route: 048
     Dates: start: 2009
  23. CILOSTAZOL [Concomitant]
     Indication: ARTERIOSCLEROSIS
     Route: 048
     Dates: start: 2011
  24. SARPOGRELATE HYDROCHLORIDE [Concomitant]
     Indication: ARTERIOSCLEROSIS
     Route: 048
     Dates: start: 2011
  25. CRAVIT OPHTHALMIC SOLUTION [Concomitant]
     Indication: OPHTHALMIA NODOSA
     Route: 047
     Dates: start: 2014
  26. LANTUS [Concomitant]
     Indication: TYPE 2 DIABETES MELLITUS
     Route: 058
     Dates: start: 2014
  27. MOHRUS TAPE [Concomitant]
     Indication: MUSCULOSKELETAL PAIN
     Route: 062
     Dates: start: 2014
  28. NITOROL [Concomitant]
     Indication: CHEST PAIN
     Route: 048
     Dates: start: 2014
  29. ALLOID G [Concomitant]
     Indication: GASTRITIS PROPHYLAXIS
     Route: 048
     Dates: start: 20140303
  30. SYAKUYAKUKANNZOTOU [Concomitant]
     Indication: MUSCLE SPASMS
     Route: 048
     Dates: start: 2014

REACTIONS (1)
  - Bronchitis [Recovered/Resolved]
